FAERS Safety Report 19610357 (Version 2)
Quarter: 2021Q3

REPORT INFORMATION
  Report Type: Spontaneous
  Country: HR (occurrence: HR)
  Receive Date: 20210726
  Receipt Date: 20210806
  Transmission Date: 20211014
  Serious: Yes (Other)
  Sender: FDA-Public Use
  Company Number: HR-GLAXOSMITHKLINE-HRCH2021047992

PATIENT
  Sex: Female

DRUGS (1)
  1. VOLTAREN (DICLOFENAC POTASSIUM) [Suspect]
     Active Substance: DICLOFENAC POTASSIUM
     Indication: PRODUCT USED FOR UNKNOWN INDICATION
     Dosage: UNK
     Route: 048

REACTIONS (1)
  - Hyperpyrexia [Unknown]

NARRATIVE: CASE EVENT DATE: 2006
